FAERS Safety Report 7059634-0 (Version None)
Quarter: 2010Q4

REPORT INFORMATION
  Report Type: 
  Country: None (occurrence: None)
  Receive Date: 20101025
  Receipt Date: 20101012
  Transmission Date: 20110411
  Serious: Yes (Other)
  Sender: FDA-Public Use
  Company Number: US-ELI_LILLY_AND_COMPANY-US201010003188

PATIENT
  Age: 32 Year
  Sex: Female

DRUGS (3)
  1. ZYPREXA [Suspect]
     Dosage: 10 MG, UNKNOWN
     Route: 030
     Dates: start: 20101008, end: 20101010
  2. ABILIFY [Concomitant]
     Indication: PSYCHOTIC DISORDER
     Dosage: 30 MG, UNKNOWN
     Route: 065
     Dates: end: 20101010
  3. CLOZARIL [Concomitant]
     Indication: PSYCHOTIC DISORDER
     Dosage: 300 MG, UNKNOWN
     Route: 065
     Dates: end: 20101010

REACTIONS (4)
  - DEPRESSED LEVEL OF CONSCIOUSNESS [None]
  - DROOLING [None]
  - INCONTINENCE [None]
  - UNRESPONSIVE TO STIMULI [None]
